FAERS Safety Report 23843680 (Version 1)
Quarter: 2024Q2

REPORT INFORMATION
  Report Type: Spontaneous
  Country: US (occurrence: None)
  Receive Date: 20240510
  Receipt Date: 20240510
  Transmission Date: 20240716
  Serious: Yes (Hospitalization)
  Sender: FDA-Public Use
  Company Number: None

PATIENT
  Age: 90 Year
  Sex: Male
  Weight: 76.6 kg

DRUGS (1)
  1. ZOLEDRONIC ACID [Suspect]
     Active Substance: ZOLEDRONIC ACID
     Indication: Plasma cell myeloma
     Dosage: FREQUENCY : UNKNOWN;?
     Route: 042
     Dates: start: 20220408, end: 20220517

REACTIONS (3)
  - Arthralgia [None]
  - Oedema [None]
  - Fatigue [None]

NARRATIVE: CASE EVENT DATE: 20220517
